FAERS Safety Report 9303288 (Version 1)
Quarter: 2013Q2

REPORT INFORMATION
  Report Type: Spontaneous
  Country: CO (occurrence: CO)
  Receive Date: 20130522
  Receipt Date: 20130522
  Transmission Date: 20140414
  Serious: Yes (Other)
  Sender: FDA-Public Use
  Company Number: CO-AMGEN-COLSP2013035366

PATIENT
  Age: 75 Year
  Sex: Male

DRUGS (7)
  1. ENBREL [Suspect]
     Indication: RHEUMATOID ARTHRITIS
     Dosage: 50 MG, UNK
     Route: 058
     Dates: start: 2012, end: 2012
  2. ACETAMINOPHEN [Concomitant]
     Indication: PAIN
     Dosage: 500 MG, 4X/DAY (EVERY 6 HRS)
     Route: 048
  3. PREDNISOLONE [Concomitant]
     Indication: ARTHRITIS
     Dosage: 5 MG, 2X/DAY
     Route: 048
  4. METHOTREXATE [Concomitant]
     Indication: ARTHRITIS
     Dosage: 4 TABLETS ON SATURDAY AND 4 TABLETS ON SUNDAY
     Route: 048
  5. LOSARTAN [Concomitant]
     Indication: HYPERTENSION
     Dosage: 50 MG, 2X/DAY
     Route: 048
     Dates: start: 2009
  6. ACETAMINOPHEN W/CODEINE [Concomitant]
     Indication: PAIN
     Dosage: 500 MG, 4X/DAY (EVERY 6 HRS)
     Route: 048
     Dates: start: 2012
  7. ARAVA [Concomitant]
     Indication: PROSTATIC DISORDER
     Dosage: 20 MG, 1X/DAY
     Route: 048
     Dates: start: 2012

REACTIONS (6)
  - Aphagia [Unknown]
  - Feeling abnormal [Unknown]
  - Diarrhoea [Unknown]
  - Abdominal pain upper [Unknown]
  - Insomnia [Unknown]
  - Depressed mood [Unknown]
